FAERS Safety Report 5101530-X (Version None)
Quarter: 2006Q3

REPORT INFORMATION
  Report Type: 
  Country: None (occurrence: None)
  Receive Date: 20060911
  Receipt Date: 20060901
  Transmission Date: 20061208
  Serious: Yes (Other)
  Sender: FDA-Public Use
  Company Number: PHEH2006US11268

PATIENT
  Age: 69 Year
  Sex: Male

DRUGS (3)
  1. LOTREL [Suspect]
     Indication: HYPERTENSION
     Dosage: UNK, UNK
     Route: 048
     Dates: start: 20050801, end: 20050801
  2. LOTREL [Suspect]
     Dosage: 5/20 MG, BID
     Route: 048
     Dates: start: 20050801, end: 20060801
  3. LOTREL [Suspect]
     Dosage: 5/20 MG, QD
     Route: 048
     Dates: start: 20060801

REACTIONS (3)
  - BLOOD PRESSURE DECREASED [None]
  - BLOOD PRESSURE INADEQUATELY CONTROLLED [None]
  - SYNCOPE [None]
